FAERS Safety Report 7009357-9 (Version None)
Quarter: 2010Q3

REPORT INFORMATION
  Report Type: 
  Country: None (occurrence: None)
  Receive Date: 20100923
  Receipt Date: 20100913
  Transmission Date: 20110219
  Serious: Yes (Other)
  Sender: FDA-Public Use
  Company Number: JP-MILLENNIUM PHARMACEUTICALS, INC.-2010-04228

PATIENT

DRUGS (3)
  1. VELCADE [Suspect]
     Indication: PRODUCT USED FOR UNKNOWN INDICATION
     Route: 042
  2. DECADRON [Concomitant]
     Route: 042
  3. GABAPENTIN [Concomitant]
     Route: 048

REACTIONS (1)
  - PSORIASIS [None]
